FAERS Safety Report 10636735 (Version 4)
Quarter: 2015Q1

REPORT INFORMATION
  Report Type: Spontaneous
  Country: US (occurrence: US)
  Receive Date: 20141208
  Receipt Date: 20150303
  Transmission Date: 20150720
  Serious: Yes (Death, Other)
  Sender: FDA-Public Use
  Company Number: US-009507513-1412USA002962

PATIENT
  Sex: Male

DRUGS (1)
  1. EMEND [Suspect]
     Active Substance: APREPITANT
     Indication: NAUSEA
     Dosage: 80-125 MG, ONE X 3 D
     Route: 048
     Dates: start: 201405, end: 2014

REACTIONS (6)
  - Prostate cancer [Unknown]
  - Atrial fibrillation [Unknown]
  - Bladder cancer [Unknown]
  - Chronic kidney disease [Unknown]
  - Death [Fatal]
  - Hypergammaglobulinaemia benign monoclonal [Unknown]

NARRATIVE: CASE EVENT DATE: 2014
